FAERS Safety Report 8548484 (Version 3)
Quarter: 2013Q1

REPORT INFORMATION
  Report Type: Report from Study
  Country: FR (occurrence: FR)
  Receive Date: 20120507
  Receipt Date: 20130307
  Transmission Date: 20140127
  Serious: Yes (Death, Other)
  Sender: FDA-Public Use
  Company Number: FR-GENZYME-CLOF-1002136

PATIENT
  Age: 30 Year
  Sex: Female

DRUGS (10)
  1. EVOLTRA [Suspect]
     Indication: BONE MARROW CONDITIONING REGIMEN
     Dosage: UNK
     Route: 042
     Dates: start: 20111126, end: 20111130
  2. EVOLTRA [Suspect]
     Indication: ACUTE MYELOID LEUKAEMIA
  3. THYMOGLOBULINE [Suspect]
     Indication: BONE MARROW CONDITIONING REGIMEN
     Dosage: UNK
     Route: 065
  4. THYMOGLOBULINE [Suspect]
     Indication: ACUTE MYELOID LEUKAEMIA
  5. ARACYTINE [Suspect]
     Indication: BONE MARROW CONDITIONING REGIMEN
     Dosage: UNK
     Route: 065
  6. ARACYTINE [Suspect]
     Indication: ACUTE MYELOID LEUKAEMIA
  7. ENDOXAN [Suspect]
     Indication: BONE MARROW CONDITIONING REGIMEN
     Dosage: UNK
     Route: 065
  8. ENDOXAN [Suspect]
     Indication: ACUTE MYELOID LEUKAEMIA
  9. BUSILVEX [Suspect]
     Indication: BONE MARROW CONDITIONING REGIMEN
     Dosage: UNK
     Route: 065
  10. BUSILVEX [Suspect]
     Indication: ACUTE MYELOID LEUKAEMIA

REACTIONS (3)
  - Bone marrow failure [Unknown]
  - Acute respiratory distress syndrome [Fatal]
  - Bronchopulmonary aspergillosis [Fatal]
